FAERS Safety Report 9682854 (Version 1)
Quarter: 2013Q4

REPORT INFORMATION
  Report Type: Spontaneous
  Country: US (occurrence: US)
  Receive Date: 20131112
  Receipt Date: 20131112
  Transmission Date: 20140711
  Serious: Yes (Hospitalization, Other)
  Sender: FDA-Public Use
  Company Number: US-ASTRAZENECA-2013SE81664

PATIENT
  Age: 67 Year
  Sex: Male
  Weight: 48.5 kg

DRUGS (15)
  1. NEXIUM [Suspect]
     Indication: GASTROOESOPHAGEAL REFLUX DISEASE
     Route: 048
     Dates: end: 201310
  2. CRESTOR [Suspect]
     Indication: BLOOD CHOLESTEROL INCREASED
     Route: 048
  3. VITAMIN D [Concomitant]
     Indication: NUTRITIONAL SUPPLEMENTATION
     Route: 048
     Dates: end: 201310
  4. SYNTHROID [Concomitant]
     Indication: THYROID DISORDER
     Route: 048
  5. ASPIRIN [Concomitant]
     Dosage: 81 MG
  6. MAGNESIUM SUPPLEMENT [Concomitant]
     Indication: BLOOD MAGNESIUM DECREASED
  7. MUCINEX [Concomitant]
     Indication: SECRETION DISCHARGE
  8. OXYCODONE [Concomitant]
     Indication: PAIN MANAGEMENT
  9. FENTANYL PATCHES [Concomitant]
     Indication: PAIN MANAGEMENT
     Route: 061
  10. TYLENOL [Concomitant]
     Indication: PAIN MANAGEMENT
  11. COLACE [Concomitant]
     Indication: CONSTIPATION
  12. SENOKOT [Concomitant]
     Indication: CONSTIPATION
  13. MIRALAX [Concomitant]
     Indication: CONSTIPATION
  14. LASOPRAZOLE [Concomitant]
  15. METOPROLOL TARTRATE [Concomitant]
     Indication: MYOCARDIAL INFARCTION
     Route: 048

REACTIONS (16)
  - Myocardial infarction [Recovered/Resolved]
  - Tonsil cancer [Unknown]
  - Metastases to lymph nodes [Unknown]
  - Oesophageal stenosis [Unknown]
  - Blood cholesterol increased [Not Recovered/Not Resolved]
  - Dysphagia [Not Recovered/Not Resolved]
  - Oropharyngeal pain [Unknown]
  - Thyroid disorder [Unknown]
  - Prostate examination abnormal [Recovered/Resolved]
  - Oropharyngeal discomfort [Unknown]
  - Pain [Not Recovered/Not Resolved]
  - Oropharyngeal pain [Not Recovered/Not Resolved]
  - Weight decreased [Not Recovered/Not Resolved]
  - Secretion discharge [Not Recovered/Not Resolved]
  - Constipation [Not Recovered/Not Resolved]
  - Blood magnesium decreased [Recovered/Resolved]
